FAERS Safety Report 17553624 (Version 2)
Quarter: 2021Q1

REPORT INFORMATION
  Report Type: Report from Study
  Country: US (occurrence: US)
  Receive Date: 20200317
  Receipt Date: 20210308
  Transmission Date: 20210419
  Serious: Yes (Other)
  Sender: FDA-Public Use
  Company Number: US-JNJFOC-20200312801

PATIENT
  Age: 19 Year
  Sex: Male
  Weight: 68.7 kg

DRUGS (4)
  1. LIDOCAINE/PRILOCAINE [Concomitant]
     Active Substance: LIDOCAINE\PRILOCAINE
  2. HUMIRA [Concomitant]
     Active Substance: ADALIMUMAB
  3. INFLIXIMAB, RECOMBINANT [Suspect]
     Active Substance: INFLIXIMAB
     Indication: INFLAMMATORY BOWEL DISEASE
     Dosage: LAST DOSE ON 20?MAR?2018
     Route: 042
     Dates: start: 20130905
  4. LORATADINE. [Concomitant]
     Active Substance: LORATADINE

REACTIONS (1)
  - Hodgkin^s disease [Not Recovered/Not Resolved]

NARRATIVE: CASE EVENT DATE: 20200219
